FAERS Safety Report 4515618-5 (Version None)
Quarter: 2004Q4

REPORT INFORMATION
  Report Type: 
  Country: None (occurrence: None)
  Receive Date: 20041126
  Receipt Date: 20041115
  Transmission Date: 20050328
  Serious: Yes (Life-Threatening, Hospitalization, Other)
  Sender: FDA-Public Use
  Company Number: 2004088742

PATIENT
  Age: 49 Year
  Sex: Male
  Weight: 116 kg

DRUGS (5)
  1. SOMAVERT [Suspect]
     Indication: BLOOD GROWTH HORMONE INCREASED
     Dosage: (15 MG)
     Dates: start: 20040629
  2. LEVOTHYROXINE SODIUM [Concomitant]
  3. HYDROCORTISONE [Concomitant]
  4. ENALAPRIL (ENALAPRIL) [Concomitant]
  5. TESTOSTERONE HEXAHYDROBENZOATE (TESOSTERONE HEXAHYDROBENZOATE) [Concomitant]

REACTIONS (1)
  - DEEP VEIN THROMBOSIS [None]
